FAERS Safety Report 7257632-5 (Version None)
Quarter: 2011Q1

REPORT INFORMATION
  Report Type: 
  Country: None (occurrence: None)
  Receive Date: 20110129
  Receipt Date: 20100520
  Transmission Date: 20110831
  Serious: No
  Sender: FDA-Public Use
  Company Number: US-ABBOTT-10P-163-0646790-00

PATIENT
  Sex: Female

DRUGS (5)
  1. TRAMADOL HCL [Concomitant]
     Indication: PRODUCT USED FOR UNKNOWN INDICATION
     Route: 048
  2. LEFLUNOMIDE [Concomitant]
     Indication: PRODUCT USED FOR UNKNOWN INDICATION
     Route: 048
  3. HUMIRA [Suspect]
     Indication: RHEUMATOID ARTHRITIS
     Route: 058
     Dates: start: 20100101, end: 20100201
  4. HUMIRA [Suspect]
     Dosage: DECREASED BY THE PATIENT.
     Route: 058
     Dates: start: 20100401
  5. HUMIRA [Suspect]
     Route: 058
     Dates: start: 20100201, end: 20100401

REACTIONS (2)
  - NAUSEA [None]
  - FATIGUE [None]
